APPROVED DRUG PRODUCT: CHLOROQUINE PHOSPHATE
Active Ingredient: CHLOROQUINE PHOSPHATE
Strength: 250MG
Dosage Form/Route: TABLET;ORAL
Application: A087504 | Product #001
Applicant: TEVA PHARMACEUTICALS USA INC
Approved: Jan 13, 1982 | RLD: No | RS: No | Type: DISCN